FAERS Safety Report 5444915-4 (Version None)
Quarter: 2007Q3

REPORT INFORMATION
  Report Type: 
  Country: None (occurrence: None)
  Receive Date: 20070906
  Receipt Date: 20070831
  Transmission Date: 20080115
  Serious: Yes (Other)
  Sender: FDA-Public Use
  Company Number: B0471948A

PATIENT
  Age: 77 Year
  Sex: Male
  Weight: 56 kg

DRUGS (6)
  1. SULTANOL [Suspect]
     Indication: EMPHYSEMA
     Route: 055
     Dates: start: 20070320
  2. SPIRIVA [Concomitant]
     Indication: EMPHYSEMA
     Route: 055
     Dates: start: 20070320
  3. MUCOTRON [Concomitant]
     Indication: EMPHYSEMA
     Route: 048
     Dates: start: 20070320
  4. ZOLPIDEM [Concomitant]
     Route: 048
  5. ALLEGRA [Concomitant]
     Indication: EMPHYSEMA
     Route: 048
     Dates: start: 20070320
  6. MAGNESIUM OXIDE [Concomitant]
     Indication: CONSTIPATION
     Dosage: 3G PER DAY
     Route: 048
     Dates: start: 20070320

REACTIONS (1)
  - VISUAL ACUITY REDUCED [None]
